FAERS Safety Report 19614952 (Version 1)
Quarter: 2021Q3

REPORT INFORMATION
  Report Type: Spontaneous
  Country: US (occurrence: US)
  Receive Date: 20210727
  Receipt Date: 20210727
  Transmission Date: 20211014
  Serious: Yes (Hospitalization)
  Sender: FDA-Public Use
  Company Number: US-MYLANLABS-2021M1045378

PATIENT
  Age: 59 Year
  Sex: Male

DRUGS (3)
  1. PREDNISONE TABLETS USP [Suspect]
     Active Substance: PREDNISONE
     Dosage: UNK (DOSE INCREASED)
     Route: 048
  2. PREDNISONE TABLETS USP [Suspect]
     Active Substance: PREDNISONE
     Indication: EPISCLERITIS
     Dosage: SCHEDULED TO RECEIVE TREATMENT FOR ONE WEEK
     Route: 048
     Dates: start: 2015
  3. IBUPROFEN. [Concomitant]
     Active Substance: IBUPROFEN
     Indication: EPISCLERITIS
     Dosage: 800 MILLIGRAM, TID
     Route: 065
     Dates: start: 2015

REACTIONS (1)
  - Drug ineffective [Unknown]

NARRATIVE: CASE EVENT DATE: 2015
